FAERS Safety Report 24539709 (Version 2)
Quarter: 2024Q4

REPORT INFORMATION
  Report Type: Spontaneous
  Country: CA (occurrence: CA)
  Receive Date: 20241023
  Receipt Date: 20241127
  Transmission Date: 20250115
  Serious: Yes (Other)
  Sender: CELLTRION
  Company Number: CA-PFIZER INC-202400199660

PATIENT

DRUGS (6)
  1. INFLECTRA [Suspect]
     Active Substance: INFLIXIMAB-DYYB
     Indication: Crohn^s disease
     Dosage: 10 MG/KG, HOSPITAL START, W 0, 2, 6 THEN EVERY 8 WEEKS
     Route: 042
     Dates: start: 20240618, end: 20240618
  2. INFLECTRA [Suspect]
     Active Substance: INFLIXIMAB-DYYB
     Dosage: 486 MG, 10 WEEKS AFTER LAST TREATMENT
     Route: 042
     Dates: start: 20240827
  3. INFLECTRA [Suspect]
     Active Substance: INFLIXIMAB-DYYB
     Dosage: 500 MG, WEEK 6 INDUCTION
     Route: 042
     Dates: start: 20240924
  4. INFLECTRA [Suspect]
     Active Substance: INFLIXIMAB-DYYB
     Dosage: 529 MG, 8 WEEKS, (10MG/KG, HOSPITAL START, W 0, 2, 6 THEN EVERY 8 WEEKS)
     Route: 042
     Dates: start: 20241119
  5. ENTOCORT [Concomitant]
     Active Substance: BUDESONIDE
     Dosage: 9 MG, DAILY
     Route: 048
     Dates: start: 20240604, end: 20240618
  6. METHOTREXATE [Concomitant]
     Active Substance: METHOTREXATE
     Dosage: 15 MG, WEEKLY
     Route: 048

REACTIONS (7)
  - Small intestinal obstruction [Unknown]
  - Intestinal stenosis [Unknown]
  - Nausea [Unknown]
  - Flatulence [Unknown]
  - Condition aggravated [Recovering/Resolving]
  - Fistula [Unknown]
  - Off label use [Unknown]

NARRATIVE: CASE EVENT DATE: 20240601
